FAERS Safety Report 6512964-0 (Version None)
Quarter: 2009Q4

REPORT INFORMATION
  Report Type: 
  Country: None (occurrence: None)
  Receive Date: 20091222
  Receipt Date: 20091222
  Transmission Date: 20100525
  Serious: No
  Sender: FDA-Public Use
  Company Number: None

PATIENT
  Age: 46 Year
  Sex: Male

DRUGS (1)
  1. HYALURONATE SODIUM [Suspect]
     Dosage: 20 MG ONCE OTHER
     Route: 050
     Dates: start: 20090904, end: 20090904

REACTIONS (3)
  - INJECTION SITE DISCOLOURATION [None]
  - OEDEMA PERIPHERAL [None]
  - PRURITUS [None]
